FAERS Safety Report 4268984-2 (Version None)
Quarter: 2004Q1

REPORT INFORMATION
  Report Type: 
  Country: None (occurrence: None)
  Receive Date: 20040109
  Receipt Date: 20040105
  Transmission Date: 20041129
  Serious: Yes (Other)
  Sender: FDA-Public Use
  Company Number: US-JNJFOC-20040100851

PATIENT
  Age: 22 Year
  Sex: Female
  Weight: 68.0396 kg

DRUGS (1)
  1. ORTHO EVRA [Suspect]
     Indication: CONTRACEPTION
     Dosage: 1 DOSE 9S), TRANSDERMAL
     Route: 062
     Dates: start: 20040103, end: 20040104

REACTIONS (12)
  - APPLICATION SITE BURNING [None]
  - CHEST DISCOMFORT [None]
  - CONVULSION [None]
  - HEADACHE [None]
  - NAUSEA [None]
  - RASH [None]
  - RESTLESSNESS [None]
  - SALIVARY HYPERSECRETION [None]
  - URTICARIA [None]
  - VAGINAL HAEMORRHAGE [None]
  - VISUAL DISTURBANCE [None]
  - VOMITING [None]
